FAERS Safety Report 8162346-3 (Version None)
Quarter: 2012Q1

REPORT INFORMATION
  Report Type: 
  Country: None (occurrence: None)
  Receive Date: 20120224
  Receipt Date: 20120216
  Transmission Date: 20120608
  Serious: Yes (Other)
  Sender: FDA-Public Use
  Company Number: US-BAYER-200940688NA

PATIENT
  Age: 37 Year
  Sex: Female
  Weight: 82 kg

DRUGS (33)
  1. COZAAR [Concomitant]
     Dosage: 100 MG, QD
     Route: 048
  2. NORVASC [Concomitant]
     Dosage: 10 MG, QD
     Route: 048
  3. VALTREX [Concomitant]
     Dosage: 500 MG, QD
     Route: 048
  4. PREVACID [Concomitant]
     Dosage: 30 MG, QD
     Route: 048
  5. HYDROXYCHLOROQUINE SULFATE [Concomitant]
     Dosage: 200 MG, BID
     Route: 048
  6. INSULIN [INSULIN] [Concomitant]
  7. PROZAC [Concomitant]
  8. ELAVIL [Concomitant]
  9. METHOTREXATE [Concomitant]
  10. BENZODIAZEPINE [Concomitant]
  11. PROCARDIA [Concomitant]
  12. TRASYLOL [Suspect]
     Indication: ATRIAL SEPTAL DEFECT REPAIR
  13. LASIX [Concomitant]
  14. FLONASE [Concomitant]
     Dosage: 1 PUFF EACH NOSTRIL
  15. CLONIDINE [Concomitant]
  16. ADVAIR DISKUS 100/50 [Concomitant]
     Dosage: 250MCG/50 ONE PUFF
     Route: 048
  17. ZOLOFT [Concomitant]
  18. CELEBREX [Concomitant]
     Indication: ARTHRITIS
  19. LIPITOR [Concomitant]
     Dosage: 80 MG, QD
     Route: 048
  20. IBUPROFEN [Concomitant]
     Dosage: 200MG-800MG, EVERY FOUR TO SIX HRS
     Route: 048
  21. TRASYLOL [Suspect]
     Indication: CORONARY ARTERY BYPASS
     Dosage: 1 ML TEST DOSE AND LOADING DOSE 100 CC OVER 30 MINUTES FOLLOWED BY 25 CC/HR INFUSION
     Route: 042
     Dates: start: 20060607, end: 20060607
  22. TRASYLOL [Suspect]
     Indication: ANOMALOUS PULMONARY VENOUS CONNECTION
  23. NEURONTIN [Concomitant]
     Dosage: 600 MG, TID
     Route: 048
  24. LEXAPRO [Concomitant]
     Dosage: 20 MG, QD
     Route: 048
  25. PIROXICAM [Concomitant]
     Dosage: 20 MG, QD
     Route: 048
  26. CLONAZEPAM [Concomitant]
     Dosage: 0.5 MG, UNK
     Route: 048
  27. LOSARTAN POTASSIUM [Concomitant]
  28. ALBUTEROL [Concomitant]
     Dosage: 2 PUFF(S), Q4HR AS NECESSARY
     Route: 048
  29. ACETYLSALICYLIC ACID SRT [Concomitant]
     Dosage: 325 MG, QD
     Route: 048
  30. INSULIN [Concomitant]
  31. TRAZODONE HCL [Concomitant]
  32. BENZODIAZEPINE [Concomitant]
  33. PRILOSEC [Concomitant]

REACTIONS (12)
  - UNEVALUABLE EVENT [None]
  - PAIN [None]
  - RENAL INJURY [None]
  - ANXIETY [None]
  - RENAL FAILURE [None]
  - STRESS [None]
  - EMOTIONAL DISTRESS [None]
  - FEAR [None]
  - PSYCHOLOGICAL TRAUMA [None]
  - ANHEDONIA [None]
  - RENAL IMPAIRMENT [None]
  - INJURY [None]
